FAERS Safety Report 26088135 (Version 1)
Quarter: 2025Q4

REPORT INFORMATION
  Report Type: Spontaneous
  Country: EU (occurrence: EU)
  Receive Date: 20251125
  Receipt Date: 20251125
  Transmission Date: 20260117
  Serious: Yes (Hospitalization)
  Sender: NOVARTIS
  Company Number: None

PATIENT
  Age: 62 Year
  Sex: Female

DRUGS (3)
  1. CERTICAN [Interacting]
     Active Substance: EVEROLIMUS
     Indication: Transplantation complication
     Dosage: 1.5 MG, Q12H, 60 TABLETS
     Route: 048
     Dates: start: 202410
  2. PROGRAF [Interacting]
     Active Substance: TACROLIMUS
     Indication: Transplantation complication
     Dosage: 9 MG, Q12H
     Route: 048
     Dates: start: 202505
  3. PREDNISONE [Interacting]
     Active Substance: PREDNISONE
     Indication: Transplantation complication
     Dosage: 5 MG, QH
     Route: 048
     Dates: start: 2021

REACTIONS (1)
  - Bacteraemia [Recovered/Resolved]

NARRATIVE: CASE EVENT DATE: 20250614
